FAERS Safety Report 8599472-0 (Version None)
Quarter: 2012Q3

REPORT INFORMATION
  Report Type: 
  Country: None (occurrence: None)
  Receive Date: 20120802
  Receipt Date: 20120724
  Transmission Date: 20120928
  Serious: Yes (Other)
  Sender: FDA-Public Use
  Company Number: 2012S1000753

PATIENT
  Age: 61 Year
  Sex: Female
  Weight: 47 kg

DRUGS (6)
  1. LIVALO [Suspect]
     Indication: HYPERLIPIDAEMIA
     Dosage: 1 MG; BID; PO
     Route: 048
     Dates: start: 20070101
  2. CALCIUM W/MAGNESIUM/VITAMIN D [Concomitant]
  3. INVESTIGATIONAL DRUG [Concomitant]
  4. COLONEL [Concomitant]
  5. LAXOBERON [Concomitant]
  6. MAGNESIUM OXIDE [Concomitant]

REACTIONS (2)
  - HELICOBACTER INFECTION [None]
  - EXTRANODAL MARGINAL ZONE B-CELL LYMPHOMA (MALT TYPE) [None]
